FAERS Safety Report 7677892-6 (Version None)
Quarter: 2011Q3

REPORT INFORMATION
  Report Type: 
  Country: None (occurrence: None)
  Receive Date: 20110811
  Receipt Date: 20110808
  Transmission Date: 20111222
  Serious: Yes (Hospitalization)
  Sender: FDA-Public Use
  Company Number: US-MERCK-1106USA00664

PATIENT
  Age: 68 Year
  Sex: Female

DRUGS (9)
  1. FOSAMAX [Suspect]
     Indication: OSTEOPOROSIS
     Route: 048
     Dates: start: 20020101, end: 20090601
  2. FOSAMAX [Suspect]
     Route: 048
     Dates: start: 20020101, end: 20100901
  3. CORTICOSTEROIDS (UNSPECIFIED) [Concomitant]
     Route: 065
     Dates: start: 20090101, end: 20090801
  4. RECLAST [Concomitant]
     Indication: OSTEOPOROSIS
     Route: 048
     Dates: start: 20100101, end: 20101001
  5. ACIPHEX [Concomitant]
     Route: 065
     Dates: start: 19990101, end: 20090101
  6. LEVOXYL [Concomitant]
     Indication: THYROID DISORDER
     Route: 065
     Dates: start: 20010101, end: 20110701
  7. ASCORBIC ACID [Concomitant]
     Route: 065
     Dates: start: 19990101, end: 20110701
  8. CRANBERRY [Concomitant]
     Route: 065
     Dates: start: 19990101, end: 20110701
  9. CALCIUM (UNSPECIFIED) AND VITAMINS (UNSPECIFIED) [Concomitant]
     Route: 065
     Dates: start: 19990101, end: 20110701

REACTIONS (3)
  - CYSTITIS [None]
  - FEMUR FRACTURE [None]
  - KNEE ARTHROPLASTY [None]
